FAERS Safety Report 6744117-5 (Version None)
Quarter: 2010Q2

REPORT INFORMATION
  Report Type: 
  Country: None (occurrence: None)
  Receive Date: 20100527
  Receipt Date: 20100520
  Transmission Date: 20101027
  Serious: Yes (Hospitalization)
  Sender: FDA-Public Use
  Company Number: B0641035A

PATIENT
  Sex: Female

DRUGS (9)
  1. LANOXIN [Suspect]
     Indication: DRUG USE FOR UNKNOWN INDICATION
     Dosage: 1UNIT PER DAY
     Route: 065
     Dates: start: 19950307, end: 20091015
  2. ANGIZEM [Suspect]
     Indication: DRUG USE FOR UNKNOWN INDICATION
     Dosage: 1UNIT PER DAY
     Route: 065
     Dates: start: 19950307, end: 20091015
  3. IBUSTRIN [Suspect]
     Indication: DRUG USE FOR UNKNOWN INDICATION
     Dosage: 1UNIT PER DAY
     Route: 048
     Dates: start: 19950307, end: 20091017
  4. MODURETIC 5-50 [Suspect]
     Indication: DRUG USE FOR UNKNOWN INDICATION
     Dosage: 1UNIT PER DAY
     Route: 048
     Dates: start: 19950307, end: 20091009
  5. ISOSORBIDE MONONITRATE [Concomitant]
     Dosage: 60MG PER DAY
     Route: 048
     Dates: start: 19950307
  6. FLUTICASONE PROPIONATE [Concomitant]
     Dosage: 2UNIT PER DAY
     Dates: start: 20000410
  7. VENTOLIN [Concomitant]
     Dosage: 1UNIT PER DAY
     Dates: start: 20000410
  8. AMINOMAL [Concomitant]
     Dosage: 3UNIT PER DAY
     Route: 042
     Dates: start: 20000410
  9. SPIRIVA [Concomitant]
     Dosage: 1UNIT PER DAY
     Dates: start: 20000410

REACTIONS (7)
  - APHASIA [None]
  - ATRIOVENTRICULAR BLOCK [None]
  - BLOOD POTASSIUM INCREASED [None]
  - BUNDLE BRANCH BLOCK LEFT [None]
  - CEREBRAL ISCHAEMIA [None]
  - DISORIENTATION [None]
  - RENAL FAILURE CHRONIC [None]
